FAERS Safety Report 16562055 (Version 1)
Quarter: 2019Q3

REPORT INFORMATION
  Report Type: Spontaneous
  Country: IE (occurrence: IE)
  Receive Date: 20190711
  Receipt Date: 20190711
  Transmission Date: 20191004
  Serious: Yes (Hospitalization)
  Sender: FDA-Public Use
  Company Number: IE-MYLANLABS-2019M1063756

PATIENT
  Age: 72 Year
  Sex: Female

DRUGS (13)
  1. WATER FOR INJECTIONS [Suspect]
     Active Substance: WATER
     Indication: NEUROENDOCRINE CARCINOMA
     Dosage: UNK
     Route: 042
  2. GLUCOSE [Suspect]
     Active Substance: DEXTROSE
     Indication: NEUROENDOCRINE CARCINOMA
     Dosage: UNK
     Route: 042
  3. SMOFLIPID [Suspect]
     Active Substance: FISH OIL\MEDIUM-CHAIN TRIGLYCERIDES\OLIVE OIL\SOYBEAN OIL
     Indication: NEUROENDOCRINE CARCINOMA
     Dosage: UNK 20 %
     Route: 042
  4. POTASSIUM CHLORIDE. [Suspect]
     Active Substance: POTASSIUM CHLORIDE
     Indication: NEUROENDOCRINE CARCINOMA
     Dosage: UNK
     Route: 042
  5. AMINOVEN [Suspect]
     Active Substance: AMINO ACIDS
     Indication: NEUROENDOCRINE CARCINOMA
     Dosage: UNK, 15 PERCENT
     Route: 042
  6. MAGNESIUM SULFATE. [Suspect]
     Active Substance: MAGNESIUM SULFATE
     Indication: NEUROENDOCRINE CARCINOMA
     Dosage: UNK
     Route: 042
  7. VITALIPID ADULT [Suspect]
     Active Substance: ERGOCALCIFEROL\PHYTONADIONE\RETINOL\TOCOPHEROL
     Indication: NEUROENDOCRINE CARCINOMA
     Dosage: UNK
     Route: 042
  8. SOLUVIT N                          /01591701/ [Suspect]
     Active Substance: VITAMINS
     Indication: NEUROENDOCRINE CARCINOMA
     Dosage: UNK
     Route: 042
  9. SODIUM CHLORIDE. [Suspect]
     Active Substance: SODIUM CHLORIDE
     Indication: NEUROENDOCRINE CARCINOMA
     Dosage: UNK
     Route: 042
  10. ADDAMEL N                          /01793901/ [Suspect]
     Active Substance: ELECTROLYTES NOS\MINERALS
     Indication: NEUROENDOCRINE CARCINOMA
     Dosage: UNK
     Route: 042
  11. CALCIUM CHLORIDE. [Suspect]
     Active Substance: CALCIUM CHLORIDE
     Indication: NEUROENDOCRINE CARCINOMA
     Dosage: UNK
     Route: 042
  12. ASCORBIC ACID. [Suspect]
     Active Substance: ASCORBIC ACID
     Indication: NEUROENDOCRINE CARCINOMA
     Dosage: UNK
     Route: 042
  13. SODIUM GLYCEROPHOSPHATE [Suspect]
     Active Substance: SODIUM GLYCEROPHOSPHATE
     Indication: NEUROENDOCRINE CARCINOMA
     Dosage: UNK
     Route: 042

REACTIONS (2)
  - Product use in unapproved indication [Not Recovered/Not Resolved]
  - Dyspnoea [Not Recovered/Not Resolved]
